FAERS Safety Report 8404854 (Version 4)
Quarter: 2013Q4

REPORT INFORMATION
  Report Type: Spontaneous
  Country: US (occurrence: US)
  Receive Date: 20120214
  Receipt Date: 20131226
  Transmission Date: 20140711
  Serious: Yes (Hospitalization, Other)
  Sender: FDA-Public Use
  Company Number: US-UCBSA-040300

PATIENT
  Age: 61 Year
  Sex: Female
  Weight: 65.77 kg

DRUGS (4)
  1. CIMZIA [Suspect]
     Indication: RHEUMATOID ARTHRITIS
     Route: 058
     Dates: start: 20110523, end: 2013
  2. CIMZIA [Suspect]
     Indication: RHEUMATOID ARTHRITIS
     Route: 058
     Dates: start: 20131201
  3. VICODIN [Concomitant]
     Indication: PAIN
     Dosage: 325MG, ONCE IN 4-5 HOURS
     Route: 048
  4. LISINOPRIL-H [Concomitant]
     Indication: HYPERTENSION
     Route: 048

REACTIONS (4)
  - Back injury [Not Recovered/Not Resolved]
  - Back pain [Not Recovered/Not Resolved]
  - Pain in extremity [Not Recovered/Not Resolved]
  - Arthralgia [Not Recovered/Not Resolved]
